FAERS Safety Report 5024566-6 (Version None)
Quarter: 2006Q2

REPORT INFORMATION
  Report Type: 
  Country: None (occurrence: None)
  Receive Date: 20060613
  Receipt Date: 20060602
  Transmission Date: 20061013
  Serious: Yes (Hospitalization)
  Sender: FDA-Public Use
  Company Number: FR-SP-2006-01357

PATIENT
  Age: 72 Year
  Sex: Male
  Weight: 78 kg

DRUGS (2)
  1. IMMUCYST [Suspect]
     Indication: BLADDER CANCER
     Dosage: SUSPENSION, 50 ML
     Route: 043
     Dates: start: 20050923, end: 20050923
  2. IMMUCYST [Suspect]
     Route: 043
     Dates: start: 20060317, end: 20060317

REACTIONS (2)
  - CYSTITIS [None]
  - POLLAKIURIA [None]
